FAERS Safety Report 8888166 (Version 11)
Quarter: 2014Q1

REPORT INFORMATION
  Report Type: Report from Study
  Country: JP (occurrence: JP)
  Receive Date: 20121106
  Receipt Date: 20140120
  Transmission Date: 20141002
  Serious: Yes (Death, Hospitalization, Other)
  Sender: FDA-Public Use
  Company Number: JP-009507513-1211JPN001435

PATIENT
  Age: 50 Year
  Sex: Male
  Weight: 100 kg

DRUGS (17)
  1. PEGINTRON [Suspect]
     Indication: CHRONIC HEPATITIS C
     Dosage: 1.5 MICROGRAM PER KILOGRAM, QW
     Route: 058
     Dates: start: 20120814, end: 20120820
  2. PEGINTRON [Suspect]
     Dosage: 1 MICROGRAM PER KILOGRAM, QW
     Route: 058
     Dates: start: 20120821, end: 20120903
  3. PEGINTRON [Suspect]
     Dosage: 0.8 MICROGRAM PER KILOGRAM, QW
     Route: 058
     Dates: start: 20120904, end: 20121009
  4. REBETOL [Suspect]
     Indication: CHRONIC HEPATITIS C
     Dosage: 1000 MG, QD
     Route: 048
     Dates: start: 20120814, end: 20120827
  5. REBETOL [Suspect]
     Dosage: 800 MG, QD
     Route: 048
     Dates: start: 20120828, end: 20120903
  6. REBETOL [Suspect]
     Dosage: 600 MG, QD
     Route: 048
     Dates: start: 20120904, end: 20121015
  7. TELAVIC [Suspect]
     Indication: CHRONIC HEPATITIS C
     Dosage: 1500 MG, QD
     Route: 048
     Dates: start: 20120814, end: 20121015
  8. PREDONINE [Suspect]
     Indication: ADVERSE EVENT
     Dosage: 30 MG, QD
     Route: 048
     Dates: start: 20120925, end: 20121008
  9. PREDONINE [Suspect]
     Dosage: 25 MG, QD
     Route: 048
     Dates: start: 20121009, end: 20121015
  10. PREDONINE [Suspect]
     Dosage: 20 MG, QD
     Route: 048
     Dates: start: 20121016, end: 20121022
  11. PREDONINE [Suspect]
     Dosage: 15 MG, QD
     Route: 048
     Dates: start: 20121023, end: 20121025
  12. ROHYPNOL [Concomitant]
     Indication: PROPHYLAXIS
     Dosage: 2 MG, QD, FORMULATION: POR
     Route: 048
     Dates: start: 20120814, end: 20121025
  13. WARFARIN [Concomitant]
     Indication: ATRIAL FIBRILLATION
     Dosage: 2 MG, QD,FORMULATION: POR
     Route: 048
     Dates: end: 20121025
  14. NORVASC [Concomitant]
     Indication: HYPERTENSION
     Dosage: 5 MG, QD, FORMULATION: POR
     Route: 048
     Dates: end: 20121025
  15. NOVOLIN R [Concomitant]
     Indication: DIABETES MELLITUS
     Dosage: 7-5-3 UNITS
     Route: 058
     Dates: end: 20121025
  16. NOVOLIN R [Concomitant]
     Dosage: 7-7-5 UNITS
     Route: 058
     Dates: start: 20121002, end: 20121016
  17. LOXONIN [Concomitant]
     Indication: PROPHYLAXIS
     Dosage: 120 MG, QD, FORMULATION: POR
     Route: 048
     Dates: start: 20120814, end: 20121025

REACTIONS (2)
  - Sepsis [Fatal]
  - Platelet count decreased [Unknown]
